FAERS Safety Report 4968761-0 (Version None)
Quarter: 2006Q2

REPORT INFORMATION
  Report Type: 
  Country: None (occurrence: None)
  Receive Date: 20060405
  Receipt Date: 20060324
  Transmission Date: 20061013
  Serious: Yes (Death)
  Sender: FDA-Public Use
  Company Number: 222187

PATIENT
  Age: 47 Year
  Sex: Female

DRUGS (3)
  1. MABTHERA (RITUXIMAB) CONC FOR SOLUTION FOR INFUSION [Suspect]
     Indication: NEUROMYELITIS OPTICA
     Dosage: 1 G, Q2W, INTRAVENOUS
     Route: 042
     Dates: start: 20060209
  2. HEPARIN [Concomitant]
  3. CORTISON (CORTISONE ACETATE) [Concomitant]

REACTIONS (4)
  - AUTONOMIC NERVOUS SYSTEM IMBALANCE [None]
  - BRADYCARDIA [None]
  - CARDIAC ARREST [None]
  - VENOUS THROMBOSIS [None]
